FAERS Safety Report 7111090-X (Version None)
Quarter: 2010Q4

REPORT INFORMATION
  Report Type: 
  Country: None (occurrence: None)
  Receive Date: 20101118
  Receipt Date: 20101110
  Transmission Date: 20110411
  Serious: Yes (Other)
  Sender: FDA-Public Use
  Company Number: IE-JNJFOC-20100900937

PATIENT
  Sex: Female
  Weight: 98.8 kg

DRUGS (5)
  1. USTEKINUMAB [Suspect]
     Indication: PSORIASIS
     Route: 058
  2. DICLOFENAC SODIUM [Concomitant]
     Indication: ARTHRITIS
     Route: 048
  3. TRAMADOL HCL [Concomitant]
     Indication: ARTHRITIS
     Route: 048
  4. PARIET [Concomitant]
     Indication: ARTHRITIS
     Route: 048
  5. DIAZEPAM [Concomitant]
     Indication: ARTHRITIS
     Route: 048

REACTIONS (1)
  - PSORIATIC ARTHROPATHY [None]
